FAERS Safety Report 15049521 (Version 1)
Quarter: 2018Q2

REPORT INFORMATION
  Report Type: Report from Study
  Country: CA (occurrence: CA)
  Receive Date: 20180622
  Receipt Date: 20180622
  Transmission Date: 20180711
  Serious: Yes (Other)
  Sender: FDA-Public Use
  Company Number: CA-ROCHE-2141818

PATIENT
  Age: 73 Year
  Sex: Male

DRUGS (13)
  1. RITUXAN [Suspect]
     Active Substance: RITUXIMAB
     Indication: RHEUMATOID ARTHRITIS
     Route: 042
     Dates: start: 20171108
  2. LANTUS [Concomitant]
     Active Substance: INSULIN GLARGINE
  3. AMLODIPINE BESYLATE. [Concomitant]
     Active Substance: AMLODIPINE BESYLATE
  4. DILTIAZEM. [Concomitant]
     Active Substance: DILTIAZEM
  5. KOFFEX (CANADA) [Concomitant]
  6. GLYCOPYRRONIUM [Concomitant]
     Active Substance: GLYCOPYRRONIUM
  7. PREDNISON [Concomitant]
     Active Substance: PREDNISONE
  8. ARAVA [Concomitant]
     Active Substance: LEFLUNOMIDE
  9. RABEPRAZOLE [Concomitant]
     Active Substance: RABEPRAZOLE
  10. SALBUTAMOL [Concomitant]
     Active Substance: ALBUTEROL
  11. IRBESARTAN. [Concomitant]
     Active Substance: IRBESARTAN
  12. FLUTICASONE. [Concomitant]
     Active Substance: FLUTICASONE
  13. ROSUVASTATIN. [Concomitant]
     Active Substance: ROSUVASTATIN

REACTIONS (1)
  - Blood glucose increased [Unknown]

NARRATIVE: CASE EVENT DATE: 20180614
